FAERS Safety Report 24162236 (Version 2)
Quarter: 2024Q3

REPORT INFORMATION
  Report Type: Report from Study
  Country: US (occurrence: US)
  Receive Date: 20240801
  Receipt Date: 20240826
  Transmission Date: 20241017
  Serious: No
  Sender: AMGEN
  Company Number: US-AMGEN-USASP2024151384

PATIENT
  Age: 25 Year
  Sex: Female

DRUGS (6)
  1. KRYSTEXXA [Suspect]
     Active Substance: PEGLOTICASE
     Indication: Gouty tophus
     Dosage: 8 MILLIGRAM, Q2WK (BIWEEKLY)
     Route: 042
     Dates: start: 20240528
  2. KRYSTEXXA [Suspect]
     Active Substance: PEGLOTICASE
     Dosage: 8 MILLIGRAM, Q2WK (BIWEEKLY)
     Route: 042
     Dates: start: 20240729
  3. KRYSTEXXA [Suspect]
     Active Substance: PEGLOTICASE
     Dosage: 8 MILLIGRAM, Q2WK (BIWEEKLY)
     Route: 042
     Dates: start: 20240814, end: 20240814
  4. SOLU-MEDROL [Concomitant]
     Active Substance: METHYLPREDNISOLONE SODIUM SUCCINATE
     Indication: Product used for unknown indication
     Dosage: 125 MILLIGRAM
     Route: 042
  5. TYLENOL [Concomitant]
     Active Substance: ACETAMINOPHEN
     Dosage: 500 MILLIGRAM
  6. ZYRTEC [Concomitant]
     Active Substance: CETIRIZINE HYDROCHLORIDE
     Dosage: 10 MILLIGRAM
     Route: 065

REACTIONS (4)
  - Flushing [Recovering/Resolving]
  - Feeling hot [Recovering/Resolving]
  - Hypersensitivity [Recovering/Resolving]
  - Blood uric acid increased [Unknown]

NARRATIVE: CASE EVENT DATE: 20240729
